FAERS Safety Report 16305709 (Version 1)
Quarter: 2019Q2

REPORT INFORMATION
  Report Type: Spontaneous
  Country: MY (occurrence: MY)
  Receive Date: 20190512
  Receipt Date: 20190512
  Transmission Date: 20190711
  Serious: Yes (Hospitalization, Other)
  Sender: FDA-Public Use
  Company Number: None

PATIENT
  Age: 45 Year
  Sex: Female
  Weight: 70 kg

DRUGS (3)
  1. VITAMIN C MULTIVITAMINS AND MINERALS. [Concomitant]
  2. CALCIUM AND VITAMIN D [Concomitant]
     Active Substance: CALCIUM\VITAMIN D
  3. LUPRON DEPOT [Suspect]
     Active Substance: LEUPROLIDE ACETATE
     Route: 008

REACTIONS (16)
  - Headache [None]
  - Dizziness [None]
  - Sinusitis [None]
  - Immune system disorder [None]
  - Hypersomnia [None]
  - Sinus disorder [None]
  - Abdominal distension [None]
  - Gastric disorder [None]
  - Weight increased [None]
  - Night sweats [None]
  - Nasal obstruction [None]
  - Dyspnoea [None]
  - Hot flush [None]
  - Libido increased [None]
  - Fatigue [None]
  - Asthenia [None]

NARRATIVE: CASE EVENT DATE: 20190205
